FAERS Safety Report 4600251-7 (Version None)
Quarter: 2005Q1

REPORT INFORMATION
  Report Type: 
  Country: None (occurrence: None)
  Receive Date: 20050307
  Receipt Date: 20040524
  Transmission Date: 20050727
  Serious: Yes (Disabling)
  Sender: FDA-Public Use
  Company Number: CH-GLAXOSMITHKLINE-B0334249A

PATIENT
  Age: 60 Year
  Sex: Female

DRUGS (5)
  1. LAMICTAL [Suspect]
     Indication: BACK PAIN
     Dosage: 25MG PER DAY
     Route: 048
     Dates: start: 20040201, end: 20040201
  2. AMITRIPTYLINE HYDROCHLORIDE [Concomitant]
     Indication: PAIN PROPHYLAXIS
     Route: 065
  3. FENTANYL [Concomitant]
     Indication: PAIN PROPHYLAXIS
     Route: 065
  4. TRAMADOL HYDROCHLORIDE [Concomitant]
     Indication: PAIN PROPHYLAXIS
     Route: 065
  5. DICLOFENAC SODIUM [Concomitant]
     Indication: PAIN
     Route: 065

REACTIONS (2)
  - BLISTER [None]
  - SCAR [None]
